FAERS Safety Report 24239308 (Version 1)
Quarter: 2024Q3

REPORT INFORMATION
  Report Type: Report from Study
  Country: US (occurrence: US)
  Receive Date: 20240822
  Receipt Date: 20240822
  Transmission Date: 20241017
  Serious: Yes (Hospitalization, Other)
  Sender: BAYER
  Company Number: US-BAYER-2024A117907

PATIENT
  Age: 67 Year
  Sex: Female

DRUGS (3)
  1. ADEMPAS [Suspect]
     Active Substance: RIOCIGUAT
     Indication: Pulmonary arterial hypertension
  2. ADEMPAS [Suspect]
     Active Substance: RIOCIGUAT
     Indication: Pulmonary arterial hypertension
     Dosage: 1.5 MG, TID
     Route: 048
     Dates: start: 202407
  3. REMODULIN [Concomitant]
     Active Substance: TREPROSTINIL

REACTIONS (15)
  - Pulmonary arterial hypertension [None]
  - Cough [None]
  - Haemorrhage [None]
  - Syncope [None]
  - Bendopnoea [None]
  - Dyspnoea at rest [None]
  - Respiration abnormal [None]
  - Dyspnoea exertional [None]
  - General physical health deterioration [None]
  - Decreased activity [None]
  - Chest pain [None]
  - Fatigue [None]
  - Joint swelling [None]
  - Dizziness [None]
  - Peripheral swelling [None]

NARRATIVE: CASE EVENT DATE: 20240729
